FAERS Safety Report 12718066 (Version 2)
Quarter: 2016Q3

REPORT INFORMATION
  Report Type: Report from Study
  Country: GB (occurrence: GB)
  Receive Date: 20160906
  Receipt Date: 20160919
  Transmission Date: 20161109
  Serious: Yes (Death, Hospitalization)
  Sender: FDA-Public Use
  Company Number: GB-AMAG PHARMACEUTICALS, INC.-AMAG201601667

PATIENT

DRUGS (2)
  1. RIENSO [Suspect]
     Active Substance: FERUMOXYTOL
     Indication: IMAGING PROCEDURE
     Dosage: 11.1 UNK, UNK
     Route: 042
     Dates: start: 20141106, end: 20141107
  2. BUSCOPAN ANTIACIDO [Suspect]
     Active Substance: RANITIDINE HYDROCHLORIDE
     Indication: PRODUCT USED FOR UNKNOWN INDICATION
     Dosage: 20 MG, UNK
     Route: 042
     Dates: start: 20140611, end: 20160711

REACTIONS (1)
  - Aneurysm ruptured [Fatal]

NARRATIVE: CASE EVENT DATE: 20160130
